FAERS Safety Report 4536048-6 (Version None)
Quarter: 2004Q4

REPORT INFORMATION
  Report Type: 
  Country: None (occurrence: None)
  Receive Date: 20041214
  Receipt Date: 20031030
  Transmission Date: 20050328
  Serious: Yes (Hospitalization)
  Sender: FDA-Public Use
  Company Number: 2003183626US

PATIENT
  Age: 22 Year
  Sex: Male

DRUGS (6)
  1. XANAX [Suspect]
  2. DURAGESIC [Suspect]
     Indication: PAIN
     Dosage: 50 UG, PER HOUR, TRANSDERMAL; SEE IMAGE
     Route: 062
     Dates: start: 20021101, end: 20030903
  3. DURAGESIC [Suspect]
     Indication: PAIN
     Dosage: 50 UG, PER HOUR, TRANSDERMAL; SEE IMAGE
     Route: 062
     Dates: start: 20030903
  4. LIBRAX [Concomitant]
  5. ZOLOFT [Concomitant]
  6. ROFECOXIB [Concomitant]

REACTIONS (9)
  - AGGRESSION [None]
  - CYANOSIS [None]
  - DEPRESSION [None]
  - HYPOKALAEMIA [None]
  - INTENTIONAL MISUSE [None]
  - LEUKOCYTOSIS [None]
  - LOSS OF CONSCIOUSNESS [None]
  - MULTIPLE DRUG OVERDOSE [None]
  - SUICIDE ATTEMPT [None]
